FAERS Safety Report 18152741 (Version 2)
Quarter: 2020Q3

REPORT INFORMATION
  Report Type: Spontaneous
  Country: DE (occurrence: DE)
  Receive Date: 20200814
  Receipt Date: 20200930
  Transmission Date: 20201103
  Serious: Yes (Hospitalization, Other)
  Sender: FDA-Public Use
  Company Number: DE-JNJFOC-20200815388

PATIENT
  Age: 95 Year
  Sex: Female
  Weight: 65 kg

DRUGS (3)
  1. XARELTO [Suspect]
     Active Substance: RIVAROXABAN
     Indication: EMBOLISM VENOUS
     Dosage: 10 MG
     Route: 048
     Dates: start: 20200816
  2. XARELTO [Suspect]
     Active Substance: RIVAROXABAN
     Indication: EMBOLISM VENOUS
     Dosage: 15 MG, OM
     Route: 048
  3. CLEXANE [Concomitant]
     Active Substance: ENOXAPARIN SODIUM

REACTIONS (6)
  - Cholestasis [Recovered/Resolved]
  - Fall [Unknown]
  - Jaundice [Recovered/Resolved]
  - Liver function test increased [Recovered/Resolved]
  - Hepatitis [Recovered/Resolved]
  - Asthenia [Recovered/Resolved]

NARRATIVE: CASE EVENT DATE: 20200709
